FAERS Safety Report 8631853 (Version 3)
Quarter: 2013Q2

REPORT INFORMATION
  Report Type: Spontaneous
  Country: IL (occurrence: IL)
  Receive Date: 20120625
  Receipt Date: 20130507
  Transmission Date: 20140414
  Serious: Yes (Other)
  Sender: FDA-Public Use
  Company Number: IL-JNJFOC-20120607590

PATIENT
  Age: 25 Year
  Sex: Male
  Weight: 56.5 kg

DRUGS (12)
  1. REMICADE [Suspect]
     Indication: CROHN^S DISEASE
     Route: 042
     Dates: start: 20120507
  2. REMICADE [Suspect]
     Indication: CROHN^S DISEASE
     Dosage: APPROXIMATE NUMBER OF INFUSIONS RECEIVED: 4
     Route: 042
     Dates: start: 20120423
  3. REMICADE [Suspect]
     Indication: CROHN^S DISEASE
     Dosage: THIRD INFUSION
     Route: 042
     Dates: start: 20120604, end: 20120716
  4. ACAMOL [Concomitant]
     Indication: PREMEDICATION
     Route: 048
     Dates: start: 20120507
  5. ACAMOL [Concomitant]
     Indication: PREMEDICATION
     Route: 048
     Dates: start: 20120423
  6. ACAMOL [Concomitant]
     Indication: PREMEDICATION
     Route: 048
     Dates: start: 20120604
  7. PHENERGAN [Concomitant]
     Indication: PREMEDICATION
     Route: 030
     Dates: start: 20120507
  8. PHENERGAN [Concomitant]
     Indication: PREMEDICATION
     Route: 030
     Dates: start: 20120423
  9. PHENERGAN [Concomitant]
     Indication: PREMEDICATION
     Route: 030
     Dates: start: 20120604
  10. SOLUMEDROL (METHYLPREDNISOLONE SODIUM SUCCINATE) [Concomitant]
     Indication: PREMEDICATION
     Route: 042
     Dates: start: 20120507
  11. SOLUMEDROL (METHYLPREDNISOLONE SODIUM SUCCINATE) [Concomitant]
     Indication: PREMEDICATION
     Route: 042
     Dates: start: 20120423
  12. SOLUMEDROL (METHYLPREDNISOLONE SODIUM SUCCINATE) [Concomitant]
     Indication: PREMEDICATION
     Route: 042
     Dates: start: 20120604

REACTIONS (9)
  - Asphyxia [Recovered/Resolved]
  - Rash [Recovered/Resolved]
  - Infusion related reaction [Recovered/Resolved]
  - Pruritus [Recovered/Resolved]
  - Dyspnoea [Recovered/Resolved]
  - Oropharyngeal pain [Recovered/Resolved]
  - Nausea [Recovered/Resolved]
  - Ocular hyperaemia [Recovered/Resolved]
  - Erythema [Recovered/Resolved]
